FAERS Safety Report 4784682-0 (Version None)
Quarter: 2005Q3

REPORT INFORMATION
  Report Type: 
  Country: None (occurrence: None)
  Receive Date: 20050929
  Receipt Date: 20050929
  Transmission Date: 20060218
  Serious: Yes (Disabling)
  Sender: FDA-Public Use
  Company Number: None

PATIENT
  Age: 72 Year
  Sex: Female
  Weight: 57.6068 kg

DRUGS (1)
  1. CIPRO [Suspect]
     Indication: URINARY TRACT INFECTION
     Dosage: 500 MG 2 X DAY ORAL
     Route: 048
     Dates: start: 20041206, end: 20041216

REACTIONS (9)
  - ARTHRALGIA [None]
  - BURNING SENSATION [None]
  - DIARRHOEA [None]
  - DYSSTASIA [None]
  - FLATULENCE [None]
  - HEADACHE [None]
  - MUSCLE SPASMS [None]
  - PAIN IN EXTREMITY [None]
  - SINUS HEADACHE [None]
